FAERS Safety Report 4466103-0 (Version None)
Quarter: 2004Q3

REPORT INFORMATION
  Report Type: 
  Country: None (occurrence: None)
  Receive Date: 20040930
  Receipt Date: 20010922
  Transmission Date: 20050211
  Serious: Yes (Hospitalization)
  Sender: FDA-Public Use
  Company Number: 2004-120499-NL

PATIENT
  Age: 58 Year
  Sex: Female

DRUGS (1)
  1. MIRTAZAPINE [Suspect]
     Indication: DEPRESSION
     Dosage: 30 MG , ORAL
     Route: 048
     Dates: start: 20040401, end: 20040730

REACTIONS (3)
  - DYSKINESIA OESOPHAGEAL [None]
  - GENERAL NUTRITION DISORDER [None]
  - WEIGHT DECREASED [None]
